FAERS Safety Report 23910196 (Version 2)
Quarter: 2025Q4

REPORT INFORMATION
  Report Type: Spontaneous
  Country: EU (occurrence: EU)
  Receive Date: 20240528
  Receipt Date: 20251215
  Transmission Date: 20260117
  Serious: Yes (Hospitalization)
  Sender: ABBVIE
  Company Number: None

PATIENT
  Sex: Female
  Weight: 2.73 kg

DRUGS (6)
  1. RINVOQ [Suspect]
     Active Substance: UPADACITINIB
     Indication: Maternal exposure timing unspecified
     Route: 064
  2. PREDNISONE [Suspect]
     Active Substance: PREDNISONE
     Indication: Maternal exposure timing unspecified
     Route: 064
  3. INNOHEP [Suspect]
     Active Substance: TINZAPARIN SODIUM
     Indication: Maternal exposure timing unspecified
     Route: 064
  4. CIMZIA [Suspect]
     Active Substance: CERTOLIZUMAB PEGOL
     Indication: Maternal exposure timing unspecified
     Route: 064
  5. INSULIN NOS [Suspect]
     Active Substance: INSULIN NOS
     Indication: Maternal exposure timing unspecified
     Route: 064
  6. LEVOTHYROXINE [Suspect]
     Active Substance: LEVOTHYROXINE
     Indication: Maternal exposure timing unspecified
     Route: 064

REACTIONS (2)
  - Premature baby [Recovered/Resolved with Sequelae]
  - Foetal exposure during pregnancy [Unknown]

NARRATIVE: CASE EVENT DATE: 20240201
